FAERS Safety Report 6412404-6 (Version None)
Quarter: 2009Q4

REPORT INFORMATION
  Report Type: 
  Country: None (occurrence: None)
  Receive Date: 20091023
  Receipt Date: 20091022
  Transmission Date: 20100525
  Serious: Yes (Death)
  Sender: FDA-Public Use
  Company Number: JP-JNJFOC-20091004749

PATIENT
  Sex: Female
  Weight: 42 kg

DRUGS (26)
  1. DUROTEP MT [Suspect]
     Route: 062
     Dates: start: 20090401
  2. DUROTEP MT [Suspect]
     Route: 062
     Dates: start: 20090401
  3. DUROTEP MT [Suspect]
     Route: 062
     Dates: start: 20090401
  4. DUROTEP MT [Suspect]
     Route: 062
     Dates: start: 20090401
  5. DUROTEP MT [Suspect]
     Route: 062
     Dates: start: 20090401
  6. DUROTEP MT [Suspect]
     Indication: LIP AND/OR ORAL CAVITY CANCER
     Route: 062
     Dates: start: 20090401
  7. OXINORM [Concomitant]
     Indication: CANCER PAIN
     Route: 048
  8. VOLTAREN [Concomitant]
     Route: 054
  9. VOLTAREN [Concomitant]
     Route: 054
  10. VOLTAREN [Concomitant]
     Indication: CANCER PAIN
     Route: 054
  11. PARIET [Concomitant]
     Route: 048
  12. KETALAR [Concomitant]
     Route: 062
  13. VOLTAREN [Concomitant]
     Route: 054
  14. VOLTAREN [Concomitant]
     Route: 054
  15. VOLTAREN [Concomitant]
     Indication: ANALGESIC THERAPY
     Route: 054
  16. GASTER D [Concomitant]
     Route: 048
  17. MUCOSTA [Concomitant]
     Route: 048
  18. NOVAMIN [Concomitant]
     Route: 048
  19. MAGMITT [Concomitant]
     Route: 048
  20. VOLTAREN [Concomitant]
     Route: 048
  21. GABAPEN [Concomitant]
     Route: 048
  22. GABAPEN [Concomitant]
     Route: 048
  23. CELECOX [Concomitant]
     Indication: ANALGESIC THERAPY
     Route: 048
  24. ASPIRIN [Concomitant]
     Route: 048
  25. XYLOCAINE [Concomitant]
     Route: 003
     Dates: start: 20090507, end: 20090521
  26. XYLOCAINE [Concomitant]
     Indication: ANALGESIC THERAPY
     Route: 003
     Dates: start: 20090507, end: 20090521

REACTIONS (2)
  - LIP AND/OR ORAL CAVITY CANCER [None]
  - WRONG TECHNIQUE IN DRUG USAGE PROCESS [None]
